FAERS Safety Report 25081607 (Version 2)
Quarter: 2025Q2

REPORT INFORMATION
  Report Type: Spontaneous
  Country: JP (occurrence: JP)
  Receive Date: 20250316
  Receipt Date: 20250408
  Transmission Date: 20250717
  Serious: Yes (Death, Life-Threatening, Other)
  Sender: AMGEN
  Company Number: JP-ONO-2024JP017999

PATIENT
  Age: 77 Year
  Sex: Male

DRUGS (3)
  1. KYPROLIS [Suspect]
     Active Substance: CARFILZOMIB
     Indication: Plasma cell myeloma
     Route: 041
     Dates: start: 20240815, end: 20240815
  2. KYPROLIS [Suspect]
     Active Substance: CARFILZOMIB
     Route: 040
     Dates: end: 20240829
  3. VELCADE [Suspect]
     Active Substance: BORTEZOMIB
     Indication: Plasma cell myeloma
     Route: 065
     Dates: start: 20240724, end: 20240802

REACTIONS (3)
  - Malignant neoplasm progression [Fatal]
  - Flatulence [Recovering/Resolving]
  - Overdose [Unknown]

NARRATIVE: CASE EVENT DATE: 20240805
